FAERS Safety Report 24890632 (Version 2)
Quarter: 2025Q1

REPORT INFORMATION
  Report Type: Report from Study
  Country: US (occurrence: US)
  Receive Date: 20250127
  Receipt Date: 20250221
  Transmission Date: 20250408
  Serious: No
  Sender: JOHNSON AND JOHNSON
  Company Number: US-JNJFOC-20250107687

PATIENT
  Sex: Female

DRUGS (1)
  1. TREMFYA [Suspect]
     Active Substance: GUSELKUMAB
     Indication: Psoriasis
     Dosage: WEEK 4 (TAKEN ON 23/JUN/2024) AND EVERY 8 WEEKS THEREAFTER (TAKEN 18-AUG-2024 AND 13-OCT-2024)
     Route: 058
     Dates: start: 20240526

REACTIONS (3)
  - Device deployment issue [Unknown]
  - Pain [Unknown]
  - Inappropriate schedule of product administration [Unknown]
